FAERS Safety Report 9477755 (Version 2)
Quarter: 2013Q3

REPORT INFORMATION
  Report Type: Spontaneous
  Country: BR (occurrence: BR)
  Receive Date: 20130827
  Receipt Date: 20130901
  Transmission Date: 20140515
  Serious: Yes (Death)
  Sender: FDA-Public Use
  Company Number: BR-ROCHE-1266816

PATIENT
  Age: 48 Year
  Sex: Male

DRUGS (5)
  1. MABTHERA [Suspect]
     Indication: ANTIPHOSPHOLIPID SYNDROME
     Dosage: 4 CYCLES
     Route: 042
     Dates: start: 20130724, end: 20130807
  2. MABTHERA [Suspect]
     Indication: SYSTEMIC LUPUS ERYTHEMATOSUS
  3. HYDROXYCHLOROQUINE [Concomitant]
     Route: 048
     Dates: start: 2008
  4. ACETYLSALICYLIC ACID [Concomitant]
     Route: 048
     Dates: start: 2008
  5. MAREVAN [Concomitant]
     Route: 048
     Dates: start: 2008

REACTIONS (1)
  - Sepsis [Fatal]
